FAERS Safety Report 6410185-3 (Version None)
Quarter: 2009Q4

REPORT INFORMATION
  Report Type: 
  Country: None (occurrence: None)
  Receive Date: 20091020
  Receipt Date: 20091020
  Transmission Date: 20100525
  Serious: No
  Sender: FDA-Public Use
  Company Number: None

PATIENT
  Sex: Female
  Weight: 77.1115 kg

DRUGS (1)
  1. ZICAM [Suspect]
     Dosage: PRESET AMOUNT ONCE DAILY
     Dates: start: 20091013, end: 20091017

REACTIONS (1)
  - ANOSMIA [None]
